FAERS Safety Report 6193870-0 (Version None)
Quarter: 2009Q2

REPORT INFORMATION
  Report Type: 
  Country: None (occurrence: None)
  Receive Date: 20090518
  Receipt Date: 20090506
  Transmission Date: 20091009
  Serious: Yes (Other)
  Sender: FDA-Public Use
  Company Number: FR-PFIZER INC-2009208465

PATIENT
  Age: 38 Year

DRUGS (6)
  1. ZOLOFT [Suspect]
     Route: 048
     Dates: start: 20090403, end: 20090420
  2. NEURONTIN [Suspect]
     Route: 048
     Dates: start: 20090418, end: 20090420
  3. KEPPRA [Concomitant]
     Dosage: UNK
  4. AVLOCARDYL [Concomitant]
     Dosage: UNK
  5. LIORESAL ^NOVARTIS^ [Concomitant]
     Dosage: UNK
  6. PREVISCAN [Concomitant]
     Dosage: UNK

REACTIONS (1)
  - SEROTONIN SYNDROME [None]
